FAERS Safety Report 9688181 (Version 1)
Quarter: 2013Q4

REPORT INFORMATION
  Report Type: Spontaneous
  Country: US (occurrence: None)
  Receive Date: 20131113
  Receipt Date: 20131113
  Transmission Date: 20140711
  Serious: No
  Sender: FDA-Public Use
  Company Number: None

PATIENT
  Age: 44 Year
  Sex: Female
  Weight: 72.58 kg

DRUGS (1)
  1. SULFAMETHOXAZOLE + TRIMETHOPRIM [Suspect]
     Indication: BRONCHITIS
     Dosage: 1 PILL, TWICE DAILY, TAKEN BY MOUTH
     Route: 048
     Dates: start: 20131105, end: 20131117

REACTIONS (10)
  - Anxiety [None]
  - Chills [None]
  - Hyperhidrosis [None]
  - Paraesthesia [None]
  - Chest pain [None]
  - Sensation of heaviness [None]
  - Headache [None]
  - Neck pain [None]
  - Diarrhoea [None]
  - Insomnia [None]
